FAERS Safety Report 9937877 (Version 1)
Quarter: 2014Q1

REPORT INFORMATION
  Report Type: Spontaneous
  Country: US (occurrence: US)
  Receive Date: 20140303
  Receipt Date: 20140303
  Transmission Date: 20141002
  Serious: No
  Sender: FDA-Public Use
  Company Number: US-BIOGENIDEC-2014BI016572

PATIENT
  Age: 36 Year
  Sex: Female

DRUGS (8)
  1. TECFIDERA [Suspect]
     Indication: MULTIPLE SCLEROSIS
     Route: 048
     Dates: start: 201312
  2. TECFIDERA [Suspect]
     Indication: MULTIPLE SCLEROSIS
     Dates: start: 201402
  3. ADVIL [Concomitant]
  4. BUTALBITAL-ACETAMINOPHEN [Concomitant]
  5. FISH OIL [Concomitant]
  6. RITALIN [Concomitant]
  7. ZOLOFT [Concomitant]
  8. AMITRIPTYLINE [Concomitant]

REACTIONS (5)
  - Musculoskeletal disorder [Unknown]
  - Hyperaesthesia [Unknown]
  - Intentional drug misuse [Unknown]
  - Diarrhoea [Recovered/Resolved]
  - Nausea [Recovered/Resolved]
